FAERS Safety Report 8076627-5 (Version None)
Quarter: 2012Q1

REPORT INFORMATION
  Report Type: 
  Country: None (occurrence: None)
  Receive Date: 20120127
  Receipt Date: 20120120
  Transmission Date: 20120608
  Serious: Yes (Life-Threatening, Hospitalization, Disabling)
  Sender: FDA-Public Use
  Company Number: US-BAYER-2011-037305

PATIENT
  Age: 31 Year
  Sex: Female
  Weight: 98 kg

DRUGS (4)
  1. GLUMETZA [Concomitant]
     Dosage: UNK
     Dates: start: 20090526
  2. LEXAPRO [Concomitant]
     Indication: ANXIETY
     Dosage: UNK
     Dates: start: 20070101
  3. YAZ [Suspect]
     Indication: INFERTILITY
     Dosage: UNK UNK, QD
     Route: 048
     Dates: start: 20090501, end: 20090622
  4. SYNTHROID [Concomitant]
     Indication: HYPOTHYROIDISM
     Dosage: UNK
     Dates: start: 20000101, end: 20100101

REACTIONS (12)
  - PAIN IN EXTREMITY [None]
  - EMOTIONAL DISTRESS [None]
  - THROMBOSIS [None]
  - ANHEDONIA [None]
  - OEDEMA PERIPHERAL [None]
  - CHEST PAIN [None]
  - PULMONARY EMBOLISM [None]
  - DEEP VEIN THROMBOSIS [None]
  - GENERAL PHYSICAL HEALTH DETERIORATION [None]
  - DYSPNOEA [None]
  - PAIN [None]
  - ANXIETY [None]
